FAERS Safety Report 5705050-0 (Version None)
Quarter: 2008Q2

REPORT INFORMATION
  Report Type: 
  Country: None (occurrence: None)
  Receive Date: 20080414
  Receipt Date: 20080402
  Transmission Date: 20081010
  Serious: Yes (Other)
  Sender: FDA-Public Use
  Company Number: GB-PFIZER INC-2008030873

PATIENT
  Age: 40 Year
  Sex: Female
  Weight: 104 kg

DRUGS (6)
  1. CHAMPIX [Suspect]
     Indication: SMOKING CESSATION THERAPY
     Route: 048
     Dates: start: 20080310, end: 20080316
  2. CLENIL [Concomitant]
     Route: 055
  3. CO-CODAMOL [Concomitant]
     Route: 048
  4. MEBEVERINE [Concomitant]
     Route: 048
  5. SALMETEROL [Concomitant]
  6. VENTOLIN [Concomitant]
     Route: 055

REACTIONS (4)
  - APHTHOUS STOMATITIS [None]
  - DIARRHOEA [None]
  - STEVENS-JOHNSON SYNDROME [None]
  - VOMITING [None]
